FAERS Safety Report 12784301 (Version 1)
Quarter: 2016Q3

REPORT INFORMATION
  Report Type: Spontaneous
  Country: CH (occurrence: CH)
  Receive Date: 20160927
  Receipt Date: 20160927
  Transmission Date: 20161109
  Serious: Yes (Other)
  Sender: FDA-Public Use
  Company Number: CH-BEH-200609742

PATIENT
  Age: 50 Year
  Sex: Male
  Weight: 109 kg

DRUGS (9)
  1. REDIMUNE [Suspect]
     Active Substance: HUMAN IMMUNOGLOBULIN G
     Indication: GUILLAIN-BARRE SYNDROME
     Dosage: DAILY DOSE QUANTITY: 36, DAILY DOSE UNIT: G
     Route: 042
     Dates: start: 20050129, end: 20050202
  2. CLEXANE [Concomitant]
     Active Substance: ENOXAPARIN SODIUM
     Dosage: DAILY DOSE QUANTITY: 100, DAILY DOSE UNIT: MG
     Dates: start: 20050201
  3. TRAMAL [Concomitant]
     Active Substance: TRAMADOL
  4. ZYLORIC [Concomitant]
     Active Substance: ALLOPURINOL
  5. NEURONTIN [Concomitant]
     Active Substance: GABAPENTIN
     Dosage: DAILY DOSE QUANTITY: 800, DAILY DOSE UNIT: MG
     Route: 048
     Dates: start: 20050128
  6. EUTHYROX [Concomitant]
     Active Substance: LEVOTHYROXINE SODIUM
     Dosage: DAILY DOSE QUANTITY: 75, DAILY DOSE UNIT: UG
     Dates: start: 200412
  7. FLOXYFRAL [Concomitant]
     Active Substance: FLUVOXAMINE
  8. DAFALGAN [Concomitant]
     Active Substance: ACETAMINOPHEN
     Dosage: DAILY DOSE QUANTITY: 1, DAILY DOSE UNIT: G
  9. SINTROM [Concomitant]
     Active Substance: ACENOCOUMAROL
     Dosage: DAILY DOSE QUANTITY: 1, DAILY DOSE UNIT: MG/ML

REACTIONS (2)
  - Acute kidney injury [Recovered/Resolved]
  - Hyperkalaemia [Unknown]

NARRATIVE: CASE EVENT DATE: 20050204
